FAERS Safety Report 15772803 (Version 1)
Quarter: 2018Q4

REPORT INFORMATION
  Report Type: Spontaneous
  Country: GB (occurrence: ES)
  Receive Date: 20181228
  Receipt Date: 20181228
  Transmission Date: 20190205
  Serious: Yes (Life-Threatening)
  Sender: FDA-Public Use
  Company Number: ES-FRESENIUS KABI-FK201813080

PATIENT
  Age: 53 Year
  Sex: Male
  Weight: 87 kg

DRUGS (3)
  1. PACLITAXEL (MANUFACTURER UNKNOWN) [Suspect]
     Active Substance: PACLITAXEL
     Indication: LUNG NEOPLASM MALIGNANT
     Route: 065
     Dates: start: 20170323
  2. SIMVASTATIN. [Suspect]
     Active Substance: SIMVASTATIN
     Indication: LUNG NEOPLASM MALIGNANT
     Route: 065
     Dates: start: 20170323, end: 20180702
  3. CARBOPLATIN. [Suspect]
     Active Substance: CARBOPLATIN
     Indication: LUNG NEOPLASM MALIGNANT
     Route: 065
     Dates: start: 20170323

REACTIONS (1)
  - Glomerulosclerosis [Not Recovered/Not Resolved]

NARRATIVE: CASE EVENT DATE: 20181017
